FAERS Safety Report 8605311-1 (Version None)
Quarter: 2012Q3

REPORT INFORMATION
  Report Type: 
  Country: None (occurrence: None)
  Receive Date: 20120820
  Receipt Date: 20120731
  Transmission Date: 20120928
  Serious: No
  Sender: FDA-Public Use
  Company Number: US-BAYER-2012-077762

PATIENT
  Age: 70 Year
  Sex: Female
  Weight: 68.481 kg

DRUGS (6)
  1. FISH OIL [Concomitant]
  2. ALEVE (CAPLET) [Suspect]
     Indication: ARTHRITIS
     Dosage: 1 DF, PRN
     Route: 048
     Dates: start: 20120301, end: 20120729
  3. MAXIDEX [Concomitant]
  4. VICODIN [Concomitant]
  5. PAXIL [Concomitant]
  6. SYNTHROID [Concomitant]

REACTIONS (1)
  - CONTUSION [None]
